FAERS Safety Report 18914664 (Version 1)
Quarter: 2021Q1

REPORT INFORMATION
  Report Type: Spontaneous
  Country: PL (occurrence: PL)
  Receive Date: 20210219
  Receipt Date: 20210219
  Transmission Date: 20210420
  Serious: Yes (Other)
  Sender: FDA-Public Use
  Company Number: PL-BRISTOL-MYERS SQUIBB COMPANY-BMS-2021-013152

PATIENT
  Age: 70 Year
  Sex: Female

DRUGS (3)
  1. NIVOLUMAB [Suspect]
     Active Substance: NIVOLUMAB
     Indication: ADENOSQUAMOUS CELL LUNG CANCER
     Dosage: 240 MG, EVERY 2 WEEKS
     Route: 042
     Dates: start: 201805
  2. CARBOPLATIN. [Suspect]
     Active Substance: CARBOPLATIN
     Indication: ADENOSQUAMOUS CELL LUNG CANCER
     Dosage: UNK
     Route: 065
     Dates: start: 201708, end: 201710
  3. VINORELBINE [Suspect]
     Active Substance: VINORELBINE TARTRATE
     Indication: ADENOSQUAMOUS CELL LUNG CANCER
     Dosage: 4 CYCLES
     Route: 065
     Dates: start: 201708, end: 201710

REACTIONS (10)
  - Asthenia [Unknown]
  - Dyspnoea [Unknown]
  - Nausea [Unknown]
  - Hyponatraemia [Unknown]
  - Pneumonia [Unknown]
  - Cough [Unknown]
  - Sinus bradycardia [Unknown]
  - Hyperkalaemia [Unknown]
  - Vomiting [Unknown]
  - Dizziness [Unknown]
